FAERS Safety Report 9713855 (Version 3)
Quarter: 2013Q4

REPORT INFORMATION
  Report Type: Spontaneous
  Country: US (occurrence: US)
  Receive Date: 20131126
  Receipt Date: 20131218
  Transmission Date: 20140711
  Serious: Yes (Other)
  Sender: FDA-Public Use
  Company Number: US-VIIV HEALTHCARE LIMITED-A1051180A

PATIENT
  Sex: Male

DRUGS (1)
  1. EPZICOM [Suspect]
     Indication: HIV INFECTION
     Route: 065

REACTIONS (1)
  - Neoplasm malignant [Unknown]
